FAERS Safety Report 14303289 (Version 1)
Quarter: 2017Q4

REPORT INFORMATION
  Report Type: Spontaneous
  Country: DK (occurrence: DK)
  Receive Date: 20171219
  Receipt Date: 20171219
  Transmission Date: 20180321
  Serious: Yes (Other)
  Sender: FDA-Public Use
  Company Number: DK-OTSUKA-18853481

PATIENT
  Sex: Male
  Weight: 67 kg

DRUGS (1)
  1. ABILIFY [Suspect]
     Active Substance: ARIPIPRAZOLE
     Indication: SCHIZOPHRENIA
     Dosage: STYRKE: 10 MG
     Route: 065

REACTIONS (10)
  - Nervousness [Unknown]
  - Anxiety [Unknown]
  - Dyskinesia [Unknown]
  - Loss of consciousness [Unknown]
  - Erectile dysfunction [Unknown]
  - Fatigue [Unknown]
  - Weight decreased [Unknown]
  - Restlessness [Unknown]
  - Depression [Unknown]
  - Tremor [Unknown]

NARRATIVE: CASE EVENT DATE: 2005
